FAERS Safety Report 9831155 (Version 2)
Quarter: 2014Q1

REPORT INFORMATION
  Report Type: Report from Study
  Country: MX (occurrence: MX)
  Receive Date: 20140121
  Receipt Date: 20140205
  Transmission Date: 20141002
  Serious: Yes (Hospitalization, Other)
  Sender: FDA-Public Use
  Company Number: MX-ROCHE-1335374

PATIENT
  Age: 69 Year
  Sex: Female

DRUGS (6)
  1. LUCENTIS [Suspect]
     Indication: EYE DISORDER
     Route: 050
     Dates: start: 201111
  2. LUCENTIS [Suspect]
     Dosage: 3 INJECTIONS
     Route: 050
     Dates: start: 201211, end: 201310
  3. INSULIN [Concomitant]
  4. MICARDIS PLUS [Concomitant]
  5. ASPIRIN [Concomitant]
  6. CONCOR [Concomitant]

REACTIONS (6)
  - Blindness unilateral [Unknown]
  - Inappropriate schedule of drug administration [Unknown]
  - Drug ineffective [Unknown]
  - Bone disorder [Not Recovered/Not Resolved]
  - Blood cholesterol abnormal [Not Recovered/Not Resolved]
  - Memory impairment [Not Recovered/Not Resolved]
